FAERS Safety Report 10276070 (Version 2)
Quarter: 2014Q3

REPORT INFORMATION
  Report Type: Report from Study
  Country: TR (occurrence: TR)
  Receive Date: 20140703
  Receipt Date: 20140708
  Transmission Date: 20150326
  Serious: Yes (Hospitalization, Other)
  Sender: FDA-Public Use
  Company Number: TR-US-EMD SERONO, INC.-7302480

PATIENT
  Sex: Female

DRUGS (4)
  1. REBIF [Suspect]
     Active Substance: INTERFERON BETA-1A
     Indication: MULTIPLE SCLEROSIS
  2. SUPRAFEN [Suspect]
     Active Substance: IBUPROFEN
     Indication: ANALGESIC THERAPY
  3. DIDERAL [Concomitant]
     Indication: PALPITATIONS
     Dates: start: 2004, end: 2006
  4. NEURONTIN [Concomitant]
     Active Substance: GABAPENTIN
     Indication: PRODUCT USED FOR UNKNOWN INDICATION
     Dates: start: 2012, end: 2014

REACTIONS (3)
  - Bradycardia [Unknown]
  - Cardiac arrest [Unknown]
  - Wolff-Parkinson-White syndrome [Not Recovered/Not Resolved]

NARRATIVE: CASE EVENT DATE: 20140423
